FAERS Safety Report 9266752 (Version 1)
Quarter: 2013Q2

REPORT INFORMATION
  Report Type: Spontaneous
  Country: US (occurrence: US)
  Receive Date: 20130502
  Receipt Date: 20130506
  Transmission Date: 20140414
  Serious: Yes (Other)
  Sender: FDA-Public Use
  Company Number: US-PFIZER INC-2013134913

PATIENT
  Sex: Female

DRUGS (8)
  1. LYRICA [Suspect]
     Dosage: UNK
  2. XANAX [Suspect]
     Dosage: UNK
  3. CARBIDOPA/LEVODOPA [Suspect]
     Dosage: UNK
  4. DEPAKOTE [Suspect]
     Dosage: UNK
  5. PROZAC [Suspect]
     Dosage: UNK
  6. OXYCONTIN [Suspect]
     Dosage: UNK
  7. REMERON [Suspect]
     Dosage: UNK
  8. MIRAPEX [Suspect]
     Dosage: UNK

REACTIONS (7)
  - Parkinsonism [Unknown]
  - Local swelling [Unknown]
  - Oedema [Unknown]
  - Neuropathy peripheral [Unknown]
  - Spinal disorder [Unknown]
  - Intervertebral disc disorder [None]
  - Drug interaction [None]
